FAERS Safety Report 4718190-X (Version None)
Quarter: 2005Q3

REPORT INFORMATION
  Report Type: 
  Country: None (occurrence: None)
  Receive Date: 20050720
  Receipt Date: 20050711
  Transmission Date: 20060218
  Serious: Yes (Death)
  Sender: FDA-Public Use
  Company Number: US-ROCHE-410559

PATIENT
  Age: 51 Year
  Sex: Male

DRUGS (5)
  1. PEGASYS [Suspect]
     Indication: HEPATITIS C
     Route: 058
     Dates: start: 20041001
  2. COPEGUS [Suspect]
     Indication: HEPATITIS C
     Route: 048
     Dates: start: 20041001
  3. COUMADIN [Concomitant]
     Indication: HEART VALVE REPLACEMENT
     Route: 048
     Dates: end: 20041113
  4. METHADONE HCL [Concomitant]
     Route: 048
     Dates: end: 20041113
  5. PRILOSEC [Concomitant]
     Route: 048
     Dates: end: 20041113

REACTIONS (3)
  - BONE MARROW DEPRESSION [None]
  - DRUG DISPENSING ERROR [None]
  - GASTROINTESTINAL HAEMORRHAGE [None]
